FAERS Safety Report 25468425 (Version 1)
Quarter: 2025Q2

REPORT INFORMATION
  Report Type: Spontaneous
  Country: AU (occurrence: None)
  Receive Date: 20250623
  Receipt Date: 20250623
  Transmission Date: 20250717
  Serious: Yes (Life-Threatening)
  Sender: INFORLIFE
  Company Number: AU-MLMSERVICE-20250509-PI484454-00145-2

PATIENT
  Age: 44 Year
  Sex: Male
  Weight: 85 kg

DRUGS (11)
  1. FENTANYL [Suspect]
     Active Substance: FENTANYL
     Indication: Anaesthesia
  2. THIOPENTAL SODIUM [Suspect]
     Active Substance: THIOPENTAL SODIUM
     Indication: Anaesthesia
  3. SEVOFLURANE [Suspect]
     Active Substance: SEVOFLURANE
     Indication: Anaesthesia
  4. ROPIVACAINE [Suspect]
     Active Substance: ROPIVACAINE
     Indication: Anaesthesia
  5. OXYGEN [Concomitant]
     Active Substance: OXYGEN
  6. VECURONIUM [Concomitant]
     Active Substance: VECURONIUM BROMIDE
     Indication: Hypotonia
  7. DEXAMETHASONE [Concomitant]
     Active Substance: DEXAMETHASONE
  8. ONDANSETRON [Concomitant]
     Active Substance: ONDANSETRON
  9. PARECOXIB [Concomitant]
     Active Substance: PARECOXIB
  10. ACETAMINOPHEN [Concomitant]
     Active Substance: ACETAMINOPHEN
  11. SUGAMMADEX [Concomitant]
     Active Substance: SUGAMMADEX

REACTIONS (1)
  - Delayed recovery from anaesthesia [Recovered/Resolved]
